FAERS Safety Report 5169870-6 (Version None)
Quarter: 2006Q4

REPORT INFORMATION
  Report Type: 
  Country: None (occurrence: None)
  Receive Date: 20061212
  Receipt Date: 20060417
  Transmission Date: 20070319
  Serious: Yes (Other)
  Sender: FDA-Public Use
  Company Number: US-ELI_LILLY_AND_COMPANY-US200604002575

PATIENT
  Age: 83 Year
  Sex: Female

DRUGS (4)
  1. ZYPREXA [Suspect]
     Indication: INTRAVENOUS CATHETER MANAGEMENT
     Dosage: 10 MG, UNK
     Route: 048
     Dates: start: 20050901, end: 20050901
  2. ZYPREXA [Suspect]
     Dosage: 5 MG, UNK
     Route: 048
     Dates: start: 20050901, end: 20050901
  3. ARICEPT                                 /JPN/ [Concomitant]
     Route: 048
  4. MEMANTINE HCL [Concomitant]
     Route: 048

REACTIONS (13)
  - AGGRESSION [None]
  - ASTHENIA [None]
  - CEREBROVASCULAR ACCIDENT [None]
  - EXTRAPYRAMIDAL DISORDER [None]
  - FEEDING DISORDER [None]
  - HEAD INJURY [None]
  - HIP FRACTURE [None]
  - MENTAL DISORDER [None]
  - MOVEMENT DISORDER [None]
  - MUSCLE RIGIDITY [None]
  - NEUROLEPTIC MALIGNANT SYNDROME [None]
  - OCULOGYRATION [None]
  - TRANSIENT ISCHAEMIC ATTACK [None]
